FAERS Safety Report 8316316-2 (Version None)
Quarter: 2012Q2

REPORT INFORMATION
  Report Type: 
  Country: None (occurrence: None)
  Receive Date: 20120427
  Receipt Date: 20120423
  Transmission Date: 20120825
  Serious: No
  Sender: FDA-Public Use
  Company Number: US-PFIZER INC-2012100379

PATIENT
  Age: 10 Year
  Sex: Female

DRUGS (2)
  1. ZOLOFT [Suspect]
     Dosage: 1.5-1 AND 3/4UNK
     Dates: start: 20120410
  2. ZOLOFT [Suspect]
     Indication: OBSESSIVE-COMPULSIVE DISORDER
     Dosage: 0.25 MG, UNK
     Dates: start: 20120101

REACTIONS (2)
  - AGITATION [None]
  - PSYCHOMOTOR HYPERACTIVITY [None]
